FAERS Safety Report 18453961 (Version 1)
Quarter: 2020Q4

REPORT INFORMATION
  Report Type: Spontaneous
  Country: US (occurrence: US)
  Receive Date: 20201102
  Receipt Date: 20201102
  Transmission Date: 20210114
  Serious: Yes (Other)
  Sender: FDA-Public Use
  Company Number: US-ASTRAZENECA-2020SF43137

PATIENT
  Sex: Male
  Weight: 127.9 kg

DRUGS (1)
  1. SYMBICORT [Suspect]
     Active Substance: BUDESONIDE\FORMOTEROL FUMARATE DIHYDRATE
     Indication: EMPHYSEMA
     Dosage: 160/4.5 2 PUFFS TWICE DAILY
     Route: 055

REACTIONS (4)
  - Memory impairment [Unknown]
  - Dementia [Unknown]
  - Intellectual disability [Unknown]
  - Dizziness [Not Recovered/Not Resolved]
